FAERS Safety Report 13134231 (Version 3)
Quarter: 2017Q4

REPORT INFORMATION
  Report Type: Spontaneous
  Country: US (occurrence: US)
  Receive Date: 20170120
  Receipt Date: 20171228
  Transmission Date: 20180320
  Serious: Yes (Hospitalization, Other)
  Sender: FDA-Public Use
  Company Number: US-PFIZER INC-2017022118

PATIENT
  Age: 67 Year
  Sex: Male

DRUGS (5)
  1. VFEND [Suspect]
     Active Substance: VORICONAZOLE
     Indication: BONE MARROW TRANSPLANT
     Dosage: 200 MG, 2X/DAY
  2. PREDNISONE. [Suspect]
     Active Substance: PREDNISONE
     Indication: BONE MARROW TRANSPLANT
     Dosage: 5 MG, 1X/DAY
     Dates: start: 20170213
  3. ACYCLOVIR. [Suspect]
     Active Substance: ACYCLOVIR
     Indication: BONE MARROW TRANSPLANT
     Dosage: 400 MG, 2X/DAY
     Dates: start: 20120118
  4. LEVOTHYROXINE SODIUM. [Suspect]
     Active Substance: LEVOTHYROXINE SODIUM
     Indication: BONE MARROW TRANSPLANT
     Dosage: 75 UG, 1X/DAY
     Dates: start: 20150118
  5. SODIUM BICARBONATE. [Suspect]
     Active Substance: SODIUM BICARBONATE
     Indication: BONE MARROW TRANSPLANT
     Dosage: 650 MG, 2X/DAY
     Dates: start: 20170213

REACTIONS (4)
  - Influenza [Recovering/Resolving]
  - Pulmonary oedema [Recovered/Resolved]
  - Infection [Recovered/Resolved]
  - Product use in unapproved indication [Unknown]

NARRATIVE: CASE EVENT DATE: 20171211
